FAERS Safety Report 7369939-1 (Version None)
Quarter: 2011Q1

REPORT INFORMATION
  Report Type: 
  Country: None (occurrence: None)
  Receive Date: 20110323
  Receipt Date: 20110310
  Transmission Date: 20110831
  Serious: Yes (Life-Threatening)
  Sender: FDA-Public Use
  Company Number: FR-JNJFOC-20110305532

PATIENT
  Age: 72 Year
  Sex: Male

DRUGS (5)
  1. HYDROCORTISONE [Concomitant]
  2. METOJECT [Suspect]
     Indication: PRODUCT USED FOR UNKNOWN INDICATION
  3. METHOTREXATE [Suspect]
     Indication: PRODUCT USED FOR UNKNOWN INDICATION
     Route: 048
  4. SPECIAFOLDINE [Concomitant]
  5. INFLIXIMAB, RECOMBINANT [Suspect]
     Indication: RHEUMATOID ARTHRITIS
     Route: 042

REACTIONS (4)
  - CORONARY ARTERY DISEASE [None]
  - LUNG DISORDER [None]
  - METASTATIC MALIGNANT MELANOMA [None]
  - CARDIAC FAILURE [None]
